FAERS Safety Report 9052725 (Version 2)
Quarter: 2013Q1

REPORT INFORMATION
  Report Type: Spontaneous
  Country: DK (occurrence: DK)
  Receive Date: 20130207
  Receipt Date: 20130218
  Transmission Date: 20140127
  Serious: Yes (Other)
  Sender: FDA-Public Use
  Company Number: DK-ROCHE-1187406

PATIENT
  Sex: Female
  Weight: 80 kg

DRUGS (13)
  1. TRASTUZUMAB [Suspect]
     Indication: BREAST CANCER
     Route: 042
     Dates: start: 20111213, end: 201207
  2. TRASTUZUMAB [Suspect]
     Route: 042
     Dates: start: 201211, end: 201301
  3. XELODA [Suspect]
     Indication: BREAST CANCER
     Dosage: 1-14 DAY
     Route: 048
     Dates: start: 201207, end: 201209
  4. DOCETAXEL [Suspect]
     Indication: BREAST CANCER
     Route: 042
  5. LAPATINIB [Suspect]
     Indication: BREAST CANCER
     Route: 048
     Dates: start: 201207, end: 201209
  6. MITOMYCIN [Suspect]
     Indication: PRODUCT USED FOR UNKNOWN INDICATION
     Route: 065
     Dates: start: 201210, end: 201211
  7. GEMCITABINE [Suspect]
     Indication: PRODUCT USED FOR UNKNOWN INDICATION
     Route: 065
     Dates: start: 201210, end: 201211
  8. VINORELBINE [Suspect]
     Indication: BREAST CANCER
     Route: 048
     Dates: start: 201211, end: 201301
  9. CISPLATIN [Suspect]
     Indication: PRODUCT USED FOR UNKNOWN INDICATION
     Route: 065
     Dates: start: 201211, end: 201301
  10. EPIRUBICIN [Suspect]
     Indication: BREAST CANCER
     Route: 042
     Dates: start: 20111011, end: 201201
  11. CYCLOPHOSPHAMID [Suspect]
     Indication: BREAST CANCER
     Route: 042
     Dates: start: 20111011, end: 201201
  12. AMLODIPIN [Concomitant]
     Indication: HYPERTENSION
     Route: 048
  13. LISINOPRIL [Concomitant]
     Indication: HYPERTENSION
     Dosage: 10/2.5 MG
     Route: 048

REACTIONS (1)
  - Liver disorder [Not Recovered/Not Resolved]
